FAERS Safety Report 21567249 (Version 1)
Quarter: 2022Q4

REPORT INFORMATION
  Report Type: Spontaneous
  Country: US (occurrence: US)
  Receive Date: 20221108
  Receipt Date: 20221108
  Transmission Date: 20230113
  Serious: Yes (Other)
  Sender: FDA-Public Use
  Company Number: US-SA-SAC20221101002129

PATIENT
  Age: 74 Year
  Sex: Male
  Weight: 79 kg

DRUGS (5)
  1. LOVENOX [Suspect]
     Active Substance: ENOXAPARIN SODIUM
     Indication: Product used for unknown indication
     Dosage: UNK
     Route: 065
  2. TYVASO [Suspect]
     Active Substance: TREPROSTINIL
     Dosage: 6MG, 1X
     Dates: start: 20220921
  3. TYVASO [Suspect]
     Active Substance: TREPROSTINIL
     Dosage: 24 UG, QID
     Dates: start: 202210, end: 20221013
  4. TYVASO [Suspect]
     Active Substance: TREPROSTINIL
     Dosage: 18 UG, QD
     Route: 055
     Dates: start: 20221013
  5. AMLODIPINE [Concomitant]
     Active Substance: AMLODIPINE BESYLATE
     Dosage: UNK

REACTIONS (6)
  - Haemorrhage [Unknown]
  - Dizziness [Unknown]
  - Dizziness postural [Unknown]
  - Diarrhoea [Recovered/Resolved]
  - Abdominal discomfort [Unknown]
  - Injection site haemorrhage [Unknown]

NARRATIVE: CASE EVENT DATE: 20220101
